FAERS Safety Report 9369628 (Version 3)
Quarter: 2013Q3

REPORT INFORMATION
  Report Type: Spontaneous
  Country: US (occurrence: None)
  Receive Date: 20130621
  Receipt Date: 20130802
  Transmission Date: 20140515
  Serious: Yes (Hospitalization, Other)
  Sender: FDA-Public Use
  Company Number: AUR-APL-2013-05043

PATIENT
  Age: 66 Year
  Sex: Female

DRUGS (9)
  1. GABAPENTIN [Suspect]
     Indication: NEUROPATHY PERIPHERAL
     Dosage: (600 MG, 3 IN 1 D)
     Route: 048
     Dates: start: 2012, end: 201305
  2. GABAPENTIN [Suspect]
     Indication: NEUROPATHY PERIPHERAL
     Dosage: (600 MG, 3 IN 1 D)
     Route: 048
     Dates: start: 2012, end: 201305
  3. ASPIRIN(ACETYLSALICYLIC ACID) [Concomitant]
  4. FUROSEMIDE(FUROSEMIDE) [Concomitant]
  5. FLUTICASONE(FLUTICASONE) [Concomitant]
  6. FESOTERODINE(FESOTERODINE) [Concomitant]
  7. CITALOPRAM(CITALOPRAM) [Concomitant]
  8. BRIMONIDINE(BRIMONIDINE) [Concomitant]
  9. CETRIZINE (CETIRIZINE HYDROCHLORIDE) [Concomitant]

REACTIONS (6)
  - Pruritus [None]
  - Neuropathy peripheral [None]
  - Cerebrovascular accident [None]
  - Cardiac failure congestive [None]
  - Drug ineffective [None]
  - Neuralgia [None]
